FAERS Safety Report 14303462 (Version 1)
Quarter: 2017Q4

REPORT INFORMATION
  Report Type: Spontaneous
  Country: JP (occurrence: JP)
  Receive Date: 20171219
  Receipt Date: 20171219
  Transmission Date: 20180321
  Serious: Yes (Hospitalization)
  Sender: FDA-Public Use
  Company Number: JP-OTSUKA-2016_003279AA

PATIENT
  Age: 83 Year
  Sex: Female

DRUGS (2)
  1. TETRAMIDE [Suspect]
     Active Substance: MIANSERIN
     Indication: PRODUCT USED FOR UNKNOWN INDICATION
     Dosage: 20 MG, QD
     Route: 065
     Dates: start: 20160121, end: 20160130
  2. ABILIFY [Suspect]
     Active Substance: ARIPIPRAZOLE
     Indication: DEMENTIA OF THE ALZHEIMER^S TYPE, WITH DELUSIONS
     Dosage: 3 MG, QD
     Route: 048
     Dates: start: 20160112, end: 20160130

REACTIONS (3)
  - Cardiac failure [Recovering/Resolving]
  - Agitation [Unknown]
  - Off label use [Unknown]

NARRATIVE: CASE EVENT DATE: 20160130
